FAERS Safety Report 5569713-2 (Version None)
Quarter: 2007Q4

REPORT INFORMATION
  Report Type: 
  Country: None (occurrence: None)
  Receive Date: 20071220
  Receipt Date: 20071217
  Transmission Date: 20080405
  Serious: Yes (Hospitalization)
  Sender: FDA-Public Use
  Company Number: IE-BOEHRINGER INGELHEIM PHARMACEUTICALS, INC.-2007-UK-04106IE

PATIENT
  Age: 75 Year
  Sex: Female

DRUGS (3)
  1. MICARDIS [Suspect]
     Route: 048
     Dates: end: 20070801
  2. LIPITOR [Suspect]
     Route: 048
     Dates: end: 20070901
  3. PANTOPRAZOLE SODIUM [Suspect]
     Route: 048
     Dates: end: 20070901

REACTIONS (3)
  - HEPATIC ENZYME INCREASED [None]
  - JAUNDICE [None]
  - VOMITING [None]
